FAERS Safety Report 25833345 (Version 3)
Quarter: 2025Q4

REPORT INFORMATION
  Report Type: Report from Study
  Country: KR (occurrence: KR)
  Receive Date: 20250922
  Receipt Date: 20251007
  Transmission Date: 20260118
  Serious: Yes (Other)
  Sender: MYLAN
  Company Number: KR-MYLANLABS-2025M1078973

PATIENT
  Age: 64 Year
  Sex: Male

DRUGS (11)
  1. PRETOMANID [Suspect]
     Active Substance: PRETOMANID
     Indication: Tuberculosis
     Dosage: 200 MILLIGRAM, QD
     Dates: start: 20241112, end: 20250507
  2. BEDAQUILINE [Suspect]
     Active Substance: BEDAQUILINE
     Indication: Product used for unknown indication
     Dosage: UNK
  3. LINEZOLID [Suspect]
     Active Substance: LINEZOLID
     Indication: Product used for unknown indication
     Dosage: UNK
  4. Tiramox [Concomitant]
     Indication: Dental implantation
     Dosage: 375 MILLIGRAM, TID
     Dates: start: 20241213, end: 20241217
  5. Tiramox [Concomitant]
     Dosage: 375 MILLIGRAM, TID
     Dates: start: 20241227, end: 20241227
  6. Loxfen [Concomitant]
     Indication: Dental implantation
     Dosage: 60 MILLIGRAM, TID
     Dates: start: 20241213, end: 20241217
  7. Loxfen [Concomitant]
     Dosage: 60 MILLIGRAM, TID
     Dates: start: 20241227, end: 20241227
  8. Almagel [Concomitant]
     Indication: Dental implantation
     Dosage: 500 MILLIGRAM, TID
     Dates: start: 20241213, end: 20241217
  9. Almagel [Concomitant]
     Dosage: 500 MILLIGRAM, TID
     Dates: start: 20241227, end: 20241227
  10. CHLORHEXIDINE GLUCONATE [Concomitant]
     Active Substance: CHLORHEXIDINE GLUCONATE
     Indication: Dental implantation
     Dosage: 100 MILLIGRAM, QD (0.12% 100ML)
     Dates: start: 20241213, end: 20241217
  11. AVELOX [Concomitant]
     Active Substance: MOXIFLOXACIN HYDROCHLORIDE
     Dosage: 400 MILLIGRAM, QD
     Dates: start: 20241112, end: 20250507

REACTIONS (2)
  - Electrocardiogram QT prolonged [Recovered/Resolved]
  - Product dose omission in error [Recovered/Resolved]

NARRATIVE: CASE EVENT DATE: 20241126
